FAERS Safety Report 25592194 (Version 1)
Quarter: 2025Q3

REPORT INFORMATION
  Report Type: Spontaneous
  Country: CN (occurrence: CN)
  Receive Date: 20250722
  Receipt Date: 20250722
  Transmission Date: 20251020
  Serious: Yes (Other)
  Sender: SANOFI AVENTIS
  Company Number: CN-SA-2025SA202772

PATIENT
  Age: 54 Year
  Sex: Male

DRUGS (5)
  1. OXALIPLATIN [Suspect]
     Active Substance: OXALIPLATIN
     Indication: Angiocentric lymphoma
  2. GEMCITABINE [Suspect]
     Active Substance: GEMCITABINE
     Indication: Angiocentric lymphoma
  3. PEGASPARGASE [Suspect]
     Active Substance: PEGASPARGASE
     Indication: Angiocentric lymphoma
  4. CEFACLOR [Concomitant]
     Active Substance: CEFACLOR
     Indication: Blood blister
     Route: 048
  5. STREPTOMYCIN [Concomitant]
     Active Substance: STREPTOMYCIN SULFATE
     Indication: Blood blister
     Route: 061

REACTIONS (3)
  - Haemorrhagic cerebral infarction [Unknown]
  - Seizure [Unknown]
  - Off label use [Unknown]
